FAERS Safety Report 4867133-7 (Version None)
Quarter: 2005Q4

REPORT INFORMATION
  Report Type: 
  Country: None (occurrence: None)
  Receive Date: 20051222
  Receipt Date: 20051216
  Transmission Date: 20060501
  Serious: Yes (Hospitalization, Other)
  Sender: FDA-Public Use
  Company Number: SEWYE104302NOV05

PATIENT
  Age: 71 Year
  Sex: Male

DRUGS (12)
  1. CYCLOSPORINE            , CONTROL FOR SIROLIMUS [Suspect]
     Indication: PROPHYLAXIS AGAINST TRANSPLANT REJECTION
     Dosage: 200 MG 2X PER 1 DAY ORAL
     Route: 048
     Dates: start: 20051012
  2. MYCOPHENOLATE MOFETIL              (MYCOPHENOLATE MOFETIL) [Concomitant]
  3. PREDNISOLONE [Concomitant]
  4. GLIPIZIDE [Concomitant]
  5. METOPROLOL SUCCINATE [Concomitant]
  6. AMLODIPINE [Concomitant]
  7. ESOMEPRAZOLE (ESOMEPRAZOLE) [Concomitant]
  8. SULFAMETOXAZOL MED TRIMETOPRIM MITE [Concomitant]
  9. IMIPENEM (IMIPENEM) [Concomitant]
  10. IMIPENEM (IMIPENEM) [Concomitant]
  11. CILASTATIN (CILASTATIN) [Concomitant]
  12. CILASTATIN (CILASTATIN) [Concomitant]

REACTIONS (5)
  - C-REACTIVE PROTEIN INCREASED [None]
  - INFECTION [None]
  - LYMPHOCELE [None]
  - SUTURE REMOVAL [None]
  - WOUND SECRETION [None]
